FAERS Safety Report 10157985 (Version 3)
Quarter: 2014Q2

REPORT INFORMATION
  Report Type: Spontaneous
  Country: US (occurrence: US)
  Receive Date: 20140507
  Receipt Date: 20140516
  Transmission Date: 20141212
  Serious: Yes (Hospitalization)
  Sender: FDA-Public Use
  Company Number: US-GLAXOSMITHKLINE-A1072225A

PATIENT
  Age: 65 Year
  Sex: Male

DRUGS (14)
  1. VENTOLIN HFA [Suspect]
     Indication: PRODUCT USED FOR UNKNOWN INDICATION
     Route: 065
     Dates: start: 20131127
  2. ADVAIR HFA [Suspect]
     Indication: CHRONIC OBSTRUCTIVE PULMONARY DISEASE
     Dosage: 1PUFF TWICE PER DAY
     Route: 055
     Dates: start: 20131127
  3. OMEPRAZOLE [Concomitant]
  4. LOVASTATIN [Concomitant]
  5. HCTZ [Concomitant]
  6. PREDNISONE [Concomitant]
  7. LORATADINE [Concomitant]
  8. ASA [Concomitant]
  9. METOPROLOL [Concomitant]
  10. PROVENTIL [Concomitant]
  11. ALBUTEROL NEBULIZER [Concomitant]
  12. IPRATROPIUM [Concomitant]
  13. BENZONATATE [Concomitant]
  14. MULTIVITAMIN [Concomitant]

REACTIONS (3)
  - Investigation [Unknown]
  - Dyspnoea [Recovering/Resolving]
  - Drug administration error [Unknown]
